FAERS Safety Report 19964079 (Version 1)
Quarter: 2021Q4

REPORT INFORMATION
  Report Type: Other
  Country: CA (occurrence: CA)
  Receive Date: 20211018
  Receipt Date: 20211018
  Transmission Date: 20220303
  Serious: Yes (Death, Hospitalization, Other)
  Sender: FDA-Public Use
  Company Number: CA-GLENMARK PHARMACEUTICALS-2021GMK068391

PATIENT

DRUGS (3)
  1. GABAPENTIN [Suspect]
     Active Substance: GABAPENTIN
     Indication: Product used for unknown indication
     Dosage: 25.5 GRAM
     Route: 048
  2. ACETAMINOPHEN [Suspect]
     Active Substance: ACETAMINOPHEN
     Indication: Product used for unknown indication
     Dosage: 50.0 GRAM
     Route: 048
  3. MORPHINE [Suspect]
     Active Substance: MORPHINE
     Indication: Product used for unknown indication
     Dosage: 60.0 MILLIGRAM
     Route: 048

REACTIONS (13)
  - Brain oedema [Fatal]
  - Cerebral haemorrhage [Fatal]
  - Coagulopathy [Fatal]
  - Diffuse axonal injury [Fatal]
  - Hepatic failure [Fatal]
  - Ileus [Fatal]
  - Lactic acidosis [Fatal]
  - Mental status changes [Fatal]
  - Metabolic acidosis [Fatal]
  - Encephalopathy [Fatal]
  - Depressed level of consciousness [Fatal]
  - Hypoglycaemia [Fatal]
  - Overdose [Fatal]
